FAERS Safety Report 21723666 (Version 2)
Quarter: 2022Q4

REPORT INFORMATION
  Report Type: Spontaneous
  Country: US (occurrence: US)
  Receive Date: 20221213
  Receipt Date: 20221219
  Transmission Date: 20230113
  Serious: Yes (Hospitalization, Other)
  Sender: FDA-Public Use
  Company Number: US-PFIZER INC-202201356942

PATIENT
  Age: 68 Year
  Sex: Female

DRUGS (7)
  1. CYTARABINE [Suspect]
     Active Substance: CYTARABINE
     Indication: Acute myeloid leukaemia
     Dosage: 170 MG, DAILY (100 MG/M2)
     Route: 042
  2. CYTARABINE [Suspect]
     Active Substance: CYTARABINE
     Dosage: 50 MG, ON DAY 28 OF CHEMOTHERAPY
     Route: 037
  3. IDARUBICIN HYDROCHLORIDE [Suspect]
     Active Substance: IDARUBICIN HYDROCHLORIDE
     Indication: Acute myeloid leukaemia
     Dosage: 20 MG, DAILY (12 MG/M2)
     Route: 042
  4. SOTROVIMAB [Suspect]
     Active Substance: SOTROVIMAB
     Indication: COVID-19
     Dosage: UNK
  5. DECITABINE [Concomitant]
     Active Substance: DECITABINE
     Dosage: UNK
  6. VENETOCLAX [Concomitant]
     Active Substance: VENETOCLAX
     Dosage: UNK
  7. REMDESIVIR [Concomitant]
     Active Substance: REMDESIVIR
     Dosage: UNK

REACTIONS (1)
  - Febrile neutropenia [Recovered/Resolved]
